FAERS Safety Report 18452178 (Version 1)
Quarter: 2020Q4

REPORT INFORMATION
  Report Type: Spontaneous
  Country: FR (occurrence: FR)
  Receive Date: 20201102
  Receipt Date: 20201102
  Transmission Date: 20210114
  Serious: Yes (Hospitalization)
  Sender: FDA-Public Use
  Company Number: FR-TEVA-2020-FR-1843780

PATIENT
  Age: 34 Year
  Sex: Female

DRUGS (3)
  1. RANITIDINE. [Interacting]
     Active Substance: RANITIDINE
     Indication: ANTACID THERAPY
     Dosage: 300 MILLIGRAM DAILY;
     Route: 048
  2. CREATINE ETHYL ESTER [DIETARY SUPPLEMENT] [Interacting]
     Active Substance: DIETARY SUPPLEMENT
     Dosage: CHRONIC HIDDEN DAILY CONSUMPTION WAS EVALUATED TO BE 40-50G
     Route: 048
  3. ESOMEPRAZOLE. [Suspect]
     Active Substance: ESOMEPRAZOLE MAGNESIUM
     Indication: ANTACID THERAPY
     Dosage: 40 MILLIGRAM DAILY;
     Route: 048

REACTIONS (8)
  - Weight decreased [Unknown]
  - Condition aggravated [Recovering/Resolving]
  - Decreased appetite [Unknown]
  - Blood creatinine increased [Recovering/Resolving]
  - Drug interaction [Recovering/Resolving]
  - Metabolic acidosis [Unknown]
  - Gastritis [Unknown]
  - Overdose [Unknown]

NARRATIVE: CASE EVENT DATE: 2018
